FAERS Safety Report 21125622 (Version 3)
Quarter: 2022Q4

REPORT INFORMATION
  Report Type: Spontaneous
  Country: US (occurrence: US)
  Receive Date: 20220725
  Receipt Date: 20221021
  Transmission Date: 20230112
  Serious: No
  Sender: FDA-Public Use
  Company Number: US-JNJFOC-20220736001

PATIENT
  Age: 8 Decade
  Sex: Female

DRUGS (1)
  1. WOMENS ROGAINE UNSCENTED [Suspect]
     Active Substance: MINOXIDIL
     Indication: Alopecia
     Dosage: HALF CAPFUL
     Route: 061
     Dates: start: 202205, end: 20220810

REACTIONS (5)
  - Alopecia [Recovered/Resolved]
  - Trichorrhexis [Recovering/Resolving]
  - Wrong technique in product usage process [Unknown]
  - Poor quality product administered [Unknown]
  - Product formulation issue [Unknown]

NARRATIVE: CASE EVENT DATE: 20220101
